FAERS Safety Report 7658149-6 (Version None)
Quarter: 2011Q3

REPORT INFORMATION
  Report Type: 
  Country: None (occurrence: None)
  Receive Date: 20110805
  Receipt Date: 20110727
  Transmission Date: 20111222
  Serious: Yes (Life-Threatening, Hospitalization, Congenital Anomaly)
  Sender: FDA-Public Use
  Company Number: AU-JNJFOC-20110712373

PATIENT
  Sex: Female
  Weight: 3.58 kg

DRUGS (1)
  1. RISPERIDONE [Suspect]
     Indication: MATERNAL EXPOSURE DURING PREGNANCY
     Route: 064

REACTIONS (4)
  - RESPIRATORY DISTRESS [None]
  - NEONATAL ASPIRATION [None]
  - FOETAL DISTRESS SYNDROME [None]
  - WITHDRAWAL SYNDROME [None]
